FAERS Safety Report 9008075 (Version 3)
Quarter: 2013Q2

REPORT INFORMATION
  Report Type: Spontaneous
  Country: US (occurrence: US)
  Receive Date: 20130111
  Receipt Date: 20130619
  Transmission Date: 20140414
  Serious: Yes (Hospitalization)
  Sender: FDA-Public Use
  Company Number: US-BAYER-2013-003189

PATIENT
  Age: 27 Year
  Sex: Female
  Weight: 56.69 kg

DRUGS (4)
  1. YAZ [Suspect]
     Indication: CONTRACEPTION
     Dosage: UNK
     Dates: start: 200711, end: 200908
  2. TORADOL [Concomitant]
     Dosage: 30 MG, UNK
     Route: 042
  3. TYLENOL [Concomitant]
     Dosage: 1000 MG, UNK
     Route: 048
  4. IBUPROFEN [Concomitant]
     Dosage: AS NEEDED

REACTIONS (8)
  - Deep vein thrombosis [None]
  - Pulmonary embolism [None]
  - Injury [None]
  - Pain [None]
  - Emotional distress [None]
  - General physical health deterioration [None]
  - Anxiety [None]
  - Pain [None]
